FAERS Safety Report 22045713 (Version 2)
Quarter: 2023Q1

REPORT INFORMATION
  Report Type: Report from Study
  Country: US (occurrence: US)
  Receive Date: 20230228
  Receipt Date: 20230314
  Transmission Date: 20230417
  Serious: Yes (Hospitalization)
  Sender: FDA-Public Use
  Company Number: US-OTSUKA-2023_005124

PATIENT
  Sex: Female
  Weight: 59.1 kg

DRUGS (1)
  1. CEDAZURIDINE\DECITABINE [Suspect]
     Active Substance: CEDAZURIDINE\DECITABINE
     Indication: Myelodysplastic syndrome
     Dosage: 135 MG, QD DAYS 1-5 OF EACH 28 DAY CYCLE
     Route: 048
     Dates: start: 20230109

REACTIONS (3)
  - Back injury [Unknown]
  - Speech disorder [Unknown]
  - Therapy interrupted [Unknown]
